FAERS Safety Report 12621935 (Version 1)
Quarter: 2016Q3

REPORT INFORMATION
  Report Type: Spontaneous
  Country: CN (occurrence: CN)
  Receive Date: 20160804
  Receipt Date: 20160804
  Transmission Date: 20161109
  Serious: Yes (Hospitalization)
  Sender: FDA-Public Use
  Company Number: CN-PFIZER INC-2016363976

PATIENT
  Age: 37 Year
  Sex: Female
  Weight: 59 kg

DRUGS (8)
  1. FLUOROURACIL. [Suspect]
     Active Substance: FLUOROURACIL
     Indication: INTRADUCTAL PROLIFERATIVE BREAST LESION
     Dosage: 750 MG, 1X/DAY
     Route: 041
     Dates: start: 20151218, end: 20151218
  2. CYCLOPHOSPHAMIDE. [Suspect]
     Active Substance: CYCLOPHOSPHAMIDE
     Indication: INTRADUCTAL PROLIFERATIVE BREAST LESION
     Dosage: 800 MG, 1X/DAY
     Route: 042
     Dates: start: 20151218, end: 20151218
  3. PHARMORUBICIN [Suspect]
     Active Substance: EPIRUBICIN
     Indication: INTRADUCTAL PROLIFERATIVE BREAST LESION
     Dosage: 70 MG, 1X/DAY
     Route: 041
     Dates: start: 20151218, end: 20151218
  4. SODIUM CHLORIDE. [Concomitant]
     Active Substance: SODIUM CHLORIDE
     Dosage: 50 ML, 1X/DAY
     Route: 042
     Dates: start: 20151218, end: 20151218
  5. PHARMORUBICIN [Suspect]
     Active Substance: EPIRUBICIN
     Dosage: 80 MG, 1X/DAY
     Route: 041
     Dates: start: 20151219, end: 20151219
  6. SODIUM CHLORIDE. [Concomitant]
     Active Substance: SODIUM CHLORIDE
     Indication: VEHICLE SOLUTION USE
     Dosage: 250 ML, 1X/DAY
     Route: 041
     Dates: start: 20151218, end: 20151218
  7. GLUCOSE [Concomitant]
     Active Substance: DEXTROSE
     Indication: VEHICLE SOLUTION USE
     Dosage: 250 ML, 1X/DAY
     Route: 041
     Dates: start: 20151218, end: 20151219
  8. DEXRAZOXANE. [Concomitant]
     Active Substance: DEXRAZOXANE
     Indication: PROPHYLAXIS
     Dosage: 750 MG, 1X/DAY
     Route: 041
     Dates: start: 20151218, end: 20151219

REACTIONS (1)
  - Hepatic function abnormal [Recovered/Resolved]

NARRATIVE: CASE EVENT DATE: 20160104
